FAERS Safety Report 5857492-0 (Version None)
Quarter: 2008Q3

REPORT INFORMATION
  Report Type: 
  Country: None (occurrence: None)
  Receive Date: 20080826
  Receipt Date: 20080814
  Transmission Date: 20090109
  Serious: Yes (Other)
  Sender: FDA-Public Use
  Company Number: US-ROCHE-581142

PATIENT
  Age: 31 Year
  Sex: Female

DRUGS (10)
  1. CELLCEPT [Suspect]
     Indication: LUPUS NEPHRITIS
     Route: 065
     Dates: start: 20040201
  2. CELLCEPT [Suspect]
     Route: 065
     Dates: start: 20040501
  3. CELLCEPT [Suspect]
     Dosage: IN DIVIDED DOSES
     Route: 065
     Dates: end: 20080601
  4. CELLCEPT [Suspect]
     Dosage: STRENGTH 2000 MG; FREQUENCY DAILY
     Route: 065
     Dates: start: 20080801
  5. IMURAN [Concomitant]
     Indication: LUPUS NEPHRITIS
     Dates: start: 20080601, end: 20080801
  6. PREDNISONE [Concomitant]
     Indication: LUPUS NEPHRITIS
     Dosage: STRENGTH 2.5 MG; FREQUENCY DAILY
  7. PREDNISONE [Concomitant]
  8. COZAAR [Concomitant]
  9. LIPITOR [Concomitant]
  10. ACTONEL [Concomitant]

REACTIONS (6)
  - EYE HAEMORRHAGE [None]
  - EYE INFLAMMATION [None]
  - EYE OEDEMA [None]
  - RENAL IMPAIRMENT [None]
  - SCOTOMA [None]
  - VISION BLURRED [None]
